FAERS Safety Report 11857574 (Version 3)
Quarter: 2020Q1

REPORT INFORMATION
  Report Type: Report from Study
  Country: US (occurrence: US)
  Receive Date: 20151221
  Receipt Date: 20200304
  Transmission Date: 20200409
  Serious: Yes (Congenital Anomaly, Other)
  Sender: FDA-Public Use
  Company Number: US-UCBSA-2015039790

PATIENT
  Age: 0 Year
  Sex: Male
  Weight: 2.97 kg

DRUGS (14)
  1. VITAMIN D [Concomitant]
     Active Substance: VITAMIN D NOS
     Indication: PRODUCT USED FOR UNKNOWN INDICATION
     Dosage: 2000 IU, ONCE DAILY (QD)
     Route: 064
     Dates: start: 20150426, end: 20151006
  2. ZANTAC [Concomitant]
     Active Substance: RANITIDINE HYDROCHLORIDE
     Indication: DYSPEPSIA
     Dosage: 750 MG, TOTAL
     Route: 064
     Dates: start: 20151101, end: 20151117
  3. CERTOLIZUMAB PEGOL RA [Suspect]
     Active Substance: CERTOLIZUMAB PEGOL
     Indication: CROHN^S DISEASE
     Dosage: 400 MG, MONTHLY (QM)
     Route: 064
     Dates: start: 20150412, end: 20151220
  4. FISH OIL [Concomitant]
     Active Substance: FISH OIL
     Indication: PRODUCT USED FOR UNKNOWN INDICATION
     Dosage: 2 DF, ONCE DAILY (QD)
     Route: 064
     Dates: start: 20150426, end: 20151220
  5. FOLIC ACID. [Concomitant]
     Active Substance: FOLIC ACID
     Indication: PRODUCT USED FOR UNKNOWN INDICATION
     Dosage: 4000 ?G, ONCE DAILY (QD)
     Route: 064
     Dates: start: 20150426
  6. FLUARIX NOS [Concomitant]
     Active Substance: INFLUENZA VIRUS VACCINE
     Indication: PRODUCT USED FOR UNKNOWN INDICATION
     Dosage: 1 DF, ONCE DAILY (QD) (1 SHOT 1 DAY)
     Route: 064
     Dates: start: 20150929, end: 20150929
  7. IMURAN [Concomitant]
     Active Substance: AZATHIOPRINE
     Indication: CROHN^S DISEASE
     Dosage: 100 MG, ONCE DAILY (QD)
     Route: 064
     Dates: start: 20150426
  8. PRENATAL VITAMINS [Concomitant]
     Active Substance: VITAMINS
     Indication: PRODUCT USED FOR UNKNOWN INDICATION
     Dosage: 2 DF, ONCE DAILY (QD), (2 PILL AT ONCE)
     Route: 064
     Dates: start: 20150426, end: 20151220
  9. CAFFEINE. [Concomitant]
     Active Substance: CAFFEINE
     Indication: PRODUCT USED FOR UNKNOWN INDICATION
     Dosage: 3 SERVIN, ONCE DAILY (QD)
     Route: 064
     Dates: start: 20150426, end: 20150426
  10. CAFFEINE. [Concomitant]
     Active Substance: CAFFEINE
     Dosage: 5 SERVIN, ONCE DAILY (QD)
     Route: 064
     Dates: start: 20150427, end: 20151220
  11. ONDANSETRON [Concomitant]
     Active Substance: ONDANSETRON
     Indication: NAUSEA
     Dosage: 24 MILLIGRAM, ONCE DAILY (QD)
     Route: 064
     Dates: start: 20151006, end: 20151030
  12. CYTOGAM [Concomitant]
     Active Substance: HUMAN CYTOMEGALOVIRUS IMMUNE GLOBULIN
     Indication: CYTOMEGALOVIRUS INFECTION
     Dosage: 150 MG/KG, MONTHLY (QM)
     Route: 064
     Dates: start: 20150714, end: 20151201
  13. VITAMIN B12 [Concomitant]
     Active Substance: CYANOCOBALAMIN
     Dosage: 500 MG, ONCE DAILY (QD)
     Route: 064
     Dates: start: 20150426, end: 20151220
  14. ONDANSETRON [Concomitant]
     Active Substance: ONDANSETRON
     Indication: RENAL PAIN

REACTIONS (4)
  - Hypospadias [Unknown]
  - Maternal exposure before pregnancy [Unknown]
  - Foetal biophysical profile score [Unknown]
  - Phimosis [Unknown]

NARRATIVE: CASE EVENT DATE: 20150412
